FAERS Safety Report 8263352-0 (Version None)
Quarter: 2012Q1

REPORT INFORMATION
  Report Type: 
  Country: None (occurrence: None)
  Receive Date: 20120327
  Receipt Date: 20100723
  Transmission Date: 20120608
  Serious: Yes (Other)
  Sender: FDA-Public Use
  Company Number: PHHY2010US14562

PATIENT
  Age: 62 Year
  Sex: Male
  Weight: 139.5 kg

DRUGS (6)
  1. REFLEX ^BOOTS^ (PICOLAMINE SALICYLATE) [Concomitant]
  2. VANCOMYCIN [Concomitant]
  3. ALBUTEROL + IPRATROPIUM (IPRATROPIUM, SALBUTAMOL) [Concomitant]
  4. GLEEVEC [Suspect]
     Indication: CHRONIC MYELOID LEUKAEMIA
     Dosage: 400 MG, QD, ORAL
     Route: 048
     Dates: start: 20100123
  5. PAXIL [Concomitant]
  6. HYDREA [Concomitant]

REACTIONS (12)
  - CELLULITIS [None]
  - VERTIGO [None]
  - CHILLS [None]
  - VISION BLURRED [None]
  - PYREXIA [None]
  - WEIGHT INCREASED [None]
  - ERYTHEMA [None]
  - DIARRHOEA [None]
  - DIZZINESS [None]
  - INCREASED APPETITE [None]
  - NIGHT SWEATS [None]
  - ANAL HAEMORRHAGE [None]
